FAERS Safety Report 7311721-5 (Version None)
Quarter: 2011Q1

REPORT INFORMATION
  Report Type: 
  Country: None (occurrence: None)
  Receive Date: 20110215
  Receipt Date: 20110215
  Transmission Date: 20110831
  Serious: Yes (Hospitalization, Disabling, Other)
  Sender: FDA-Public Use
  Company Number: None

PATIENT
  Sex: Female
  Weight: 54.4316 kg

DRUGS (2)
  1. BONIVA [Suspect]
     Indication: OSTEOPOROSIS
     Dosage: 150 MG OVER A MONTH ORAL
     Route: 048
     Dates: start: 20101001
  2. BONIVA [Suspect]
     Indication: OSTEOPOROSIS
     Dosage: 150 MG OVER A MONTH ORAL
     Route: 048
     Dates: start: 20080101

REACTIONS (5)
  - SKIN INJURY [None]
  - FALL [None]
  - FEMUR FRACTURE [None]
  - ARTHRALGIA [None]
  - MYALGIA [None]
